FAERS Safety Report 19766774 (Version 1)
Quarter: 2021Q3

REPORT INFORMATION
  Report Type: Spontaneous
  Country: US (occurrence: US)
  Receive Date: 20210830
  Receipt Date: 20210830
  Transmission Date: 20211014
  Serious: Yes (Other)
  Sender: FDA-Public Use
  Company Number: None

PATIENT
  Age: 53 Year
  Sex: Female
  Weight: 93.96 kg

DRUGS (8)
  1. B?12 2500 [Concomitant]
  2. SAXENDA [Suspect]
     Active Substance: LIRAGLUTIDE
     Indication: WEIGHT DECREASED
     Route: 058
     Dates: start: 20210726, end: 20210826
  3. VITAMIN C [Concomitant]
     Active Substance: ASCORBIC ACID
  4. WELLBURTIN 150 [Concomitant]
  5. VITAMIN D [Concomitant]
     Active Substance: VITAMIN D NOS
  6. ARMOUR THYROID [Concomitant]
     Active Substance: THYROID, PORCINE
  7. BUSPAR [Concomitant]
     Active Substance: BUSPIRONE HYDROCHLORIDE
  8. MAGNESIUM CITRATE 250 [Concomitant]

REACTIONS (3)
  - Injection site reaction [None]
  - Injection site swelling [None]
  - Injection site pruritus [None]

NARRATIVE: CASE EVENT DATE: 20210819
